FAERS Safety Report 5768507-2 (Version None)
Quarter: 2008Q2

REPORT INFORMATION
  Report Type: 
  Country: None (occurrence: None)
  Receive Date: 20080612
  Receipt Date: 20080304
  Transmission Date: 20081010
  Serious: No
  Sender: FDA-Public Use
  Company Number: US-ABBOTT-08P-163-0441255-00

PATIENT
  Sex: Female
  Weight: 68.1 kg

DRUGS (7)
  1. HUMIRA [Suspect]
     Indication: CROHN'S DISEASE
     Route: 058
     Dates: start: 20070507
  2. BUDESONIDE [Concomitant]
     Indication: CROHN'S DISEASE
     Route: 048
     Dates: start: 20060501
  3. CRYSTALLINE VIT B12 INJ [Concomitant]
     Indication: CROHN'S DISEASE
  4. ERGOCALCIFEROL [Concomitant]
     Indication: CROHN'S DISEASE
  5. CALCIUM [Concomitant]
     Indication: CROHN'S DISEASE
  6. FOLIC ACID [Concomitant]
     Indication: CROHN'S DISEASE
  7. ORTHO EVRA [Concomitant]
     Indication: CONTRACEPTION
     Dosage: PATCH

REACTIONS (1)
  - ALOPECIA [None]
